FAERS Safety Report 17745228 (Version 3)
Quarter: 2021Q1

REPORT INFORMATION
  Report Type: Spontaneous
  Country: US (occurrence: US)
  Receive Date: 20200505
  Receipt Date: 20210211
  Transmission Date: 20210419
  Serious: Yes (Hospitalization)
  Sender: FDA-Public Use
  Company Number: US-VERTEX PHARMACEUTICALS-2020-010171

PATIENT
  Age: 2 Year
  Sex: Female

DRUGS (1)
  1. KALYDECO [Suspect]
     Active Substance: IVACAFTOR
     Indication: CYSTIC FIBROSIS
     Dosage: 50 MG, BID (REGULAR)
     Route: 048
     Dates: start: 20190412, end: 20210204

REACTIONS (1)
  - Rectal prolapse [Unknown]

NARRATIVE: CASE EVENT DATE: 20200420
